FAERS Safety Report 8392410-5 (Version None)
Quarter: 2012Q2

REPORT INFORMATION
  Report Type: 
  Country: None (occurrence: None)
  Receive Date: 20120529
  Receipt Date: 20120514
  Transmission Date: 20120825
  Serious: Yes (Hospitalization)
  Sender: FDA-Public Use
  Company Number: FR-WATSON-2012-08390

PATIENT
  Sex: Male
  Weight: 86 kg

DRUGS (3)
  1. ALLOPURINOL [Concomitant]
     Indication: PRODUCT USED FOR UNKNOWN INDICATION
     Dosage: 200 MG, UNK
     Route: 065
     Dates: start: 20010101
  2. RAPAFLO [Suspect]
     Indication: LOWER URINARY TRACT SYMPTOMS
     Dosage: 8 MG, DAILY
     Route: 048
     Dates: start: 20120208
  3. ATORVASTATIN [Concomitant]
     Indication: PRODUCT USED FOR UNKNOWN INDICATION
     Dosage: 10 MG, UNK
     Route: 065
     Dates: start: 20050101, end: 20120401

REACTIONS (1)
  - CEREBROVASCULAR ACCIDENT [None]
